FAERS Safety Report 5518483-2 (Version None)
Quarter: 2007Q4

REPORT INFORMATION
  Report Type: 
  Country: None (occurrence: None)
  Receive Date: 20071113
  Receipt Date: 20071113
  Transmission Date: 20080405
  Serious: Yes (Hospitalization)
  Sender: FDA-Public Use
  Company Number: None

PATIENT
  Age: 85 Year
  Sex: Female

DRUGS (9)
  1. ULTRAM [Suspect]
     Indication: DRUG USE FOR UNKNOWN INDICATION
     Dosage: 25 MG Q6 PRN PO
     Route: 048
  2. CLONIDINE [Concomitant]
  3. HYDROCHLOROTHIAZIDE [Concomitant]
  4. MEGACE [Concomitant]
  5. LIPITOR [Concomitant]
  6. CARVEDILOL [Concomitant]
  7. REGLAN [Concomitant]
  8. PLAVIX [Concomitant]
  9. CEFTIN [Concomitant]

REACTIONS (4)
  - CEREBRAL HYPERPERFUSION SYNDROME [None]
  - CEREBROVASCULAR ACCIDENT [None]
  - CONVULSION [None]
  - TRANSIENT ISCHAEMIC ATTACK [None]
